FAERS Safety Report 9781362 (Version 1)
Quarter: 2013Q4

REPORT INFORMATION
  Report Type: Spontaneous
  Country: US (occurrence: None)
  Receive Date: 20131223
  Receipt Date: 20131223
  Transmission Date: 20140711
  Serious: Yes (Life-Threatening, Hospitalization)
  Sender: FDA-Public Use
  Company Number: None

PATIENT
  Age: 41 Year
  Sex: Female
  Weight: 118 kg

DRUGS (1)
  1. RIVAROXABAN 15 MG JANSSEN [Suspect]
     Indication: EMBOLISM VENOUS
     Dosage: 1 PILL, BID, ORAL
     Route: 048
     Dates: start: 20130927, end: 20131007

REACTIONS (1)
  - Pelvic venous thrombosis [None]
